FAERS Safety Report 23298943 (Version 5)
Quarter: 2024Q1

REPORT INFORMATION
  Report Type: Report from Study
  Country: CA (occurrence: CA)
  Receive Date: 20231215
  Receipt Date: 20240322
  Transmission Date: 20240410
  Serious: Yes (Other)
  Sender: FDA-Public Use
  Company Number: CA-JNJFOC-20231057384

PATIENT
  Age: 74 Year
  Sex: Male
  Weight: 101 kg

DRUGS (6)
  1. REMICADE [Suspect]
     Active Substance: INFLIXIMAB
     Indication: Pyoderma gangrenosum
     Route: 041
     Dates: start: 20230817
  2. REMICADE [Suspect]
     Active Substance: INFLIXIMAB
     Dosage: EXPIRY 26-JUN-2026
     Route: 041
     Dates: start: 20230817
  3. RAMIPRIL [Concomitant]
     Active Substance: RAMIPRIL
     Indication: Hypertension
     Route: 065
  4. RAMIPRIL [Concomitant]
     Active Substance: RAMIPRIL
  5. RAMIPRIL [Concomitant]
     Active Substance: RAMIPRIL
     Dosage: OD
     Route: 065
  6. INDAPAMIDE [Concomitant]
     Active Substance: INDAPAMIDE
     Indication: Product used for unknown indication
     Dosage: OD
     Route: 048

REACTIONS (6)
  - Neoplasm malignant [Unknown]
  - Cataract [Recovered/Resolved]
  - Pyoderma gangrenosum [Recovering/Resolving]
  - Conjunctivitis [Recovered/Resolved]
  - Blood pressure increased [Recovering/Resolving]
  - Eczema [Recovering/Resolving]
